FAERS Safety Report 5732883-7 (Version None)
Quarter: 2008Q2

REPORT INFORMATION
  Report Type: 
  Country: None (occurrence: None)
  Receive Date: 20080509
  Receipt Date: 20080128
  Transmission Date: 20081010
  Serious: No
  Sender: FDA-Public Use
  Company Number: A0707234A

PATIENT

DRUGS (3)
  1. COREG CR [Suspect]
     Indication: HEART RATE INCREASED
     Dosage: 10MG AT NIGHT
     Route: 048
  2. C-PAP [Concomitant]
  3. UNSPECIFIED MEDICATIONS [Concomitant]

REACTIONS (2)
  - INSOMNIA [None]
  - NIGHTMARE [None]
